FAERS Safety Report 17731333 (Version 4)
Quarter: 2021Q3

REPORT INFORMATION
  Report Type: Spontaneous
  Country: US (occurrence: US)
  Receive Date: 20200430
  Receipt Date: 20210817
  Transmission Date: 20211014
  Serious: No
  Sender: FDA-Public Use
  Company Number: US-AKCEA THERAPEUTICS-2020IS001050

PATIENT
  Age: 75 Year
  Sex: Female
  Weight: 65.46 kg

DRUGS (3)
  1. ISSD (INTEGRATED SYRINGE SAFETY DEVICE) [Suspect]
     Active Substance: DEVICE
  2. TEGSEDI [Suspect]
     Active Substance: INOTERSEN SODIUM
     Route: 058
     Dates: start: 20191230, end: 20210321
  3. TEGSEDI [Suspect]
     Active Substance: INOTERSEN SODIUM
     Indication: HEREDITARY NEUROPATHIC AMYLOIDOSIS
     Route: 058
     Dates: start: 20191209

REACTIONS (16)
  - Urinary tract infection [Unknown]
  - Orthostatic hypotension [Unknown]
  - Injection site haemorrhage [Unknown]
  - Device difficult to use [Unknown]
  - Dizziness [Not Recovered/Not Resolved]
  - Vertigo [Recovered/Resolved]
  - Injection site extravasation [Unknown]
  - Renal function test abnormal [Unknown]
  - Wrong technique in product usage process [Unknown]
  - Injection site pruritus [Recovered/Resolved]
  - Injection site erythema [Recovered/Resolved]
  - Injection site mass [Unknown]
  - Renal disorder [Unknown]
  - Laboratory test abnormal [Recovered/Resolved]
  - Glomerular filtration rate decreased [Recovered/Resolved]
  - Malaise [Not Recovered/Not Resolved]

NARRATIVE: CASE EVENT DATE: 20210309
